FAERS Safety Report 6204801-9 (Version None)
Quarter: 2009Q2

REPORT INFORMATION
  Report Type: 
  Country: None (occurrence: None)
  Receive Date: 20090527
  Receipt Date: 20090519
  Transmission Date: 20091009
  Serious: Yes (Hospitalization)
  Sender: FDA-Public Use
  Company Number: PHHO2009NL06003

PATIENT
  Sex: Male
  Weight: 85 kg

DRUGS (3)
  1. CERTICAN [Suspect]
     Indication: RENAL TRANSPLANT
     Dosage: 2.25 MG, BID
     Route: 048
     Dates: start: 20071030
  2. PREDNISOLONE [Suspect]
     Indication: RENAL TRANSPLANT
     Dosage: 10 MG
     Dates: start: 20071030
  3. PROGRAFT [Suspect]
     Indication: RENAL TRANSPLANT
     Dosage: 3 MG DAILY
     Route: 048
     Dates: start: 20071030

REACTIONS (2)
  - DIARRHOEA [None]
  - HYPOGLYCAEMIA [None]
